FAERS Safety Report 5131362-8 (Version None)
Quarter: 2006Q4

REPORT INFORMATION
  Report Type: 
  Country: None (occurrence: None)
  Receive Date: 20061020
  Receipt Date: 20050823
  Transmission Date: 20070319
  Serious: Yes (Other)
  Sender: FDA-Public Use
  Company Number: PHEH2005US09394

PATIENT
  Age: 65 Year
  Sex: Male

DRUGS (1)
  1. GLEEVEC [Suspect]
     Indication: GASTROINTESTINAL STROMAL TUMOUR
     Dosage: 400 MG, QD
     Route: 048
     Dates: start: 20030101

REACTIONS (9)
  - ARTHRALGIA [None]
  - CALCINOSIS [None]
  - CARPAL TUNNEL SYNDROME [None]
  - CARTILAGE INJURY [None]
  - JOINT INJURY [None]
  - MUSCLE SPASMS [None]
  - RASH ERYTHEMATOUS [None]
  - RASH PAPULAR [None]
  - RESTLESS LEGS SYNDROME [None]
